FAERS Safety Report 21695380 (Version 1)
Quarter: 2022Q4

REPORT INFORMATION
  Report Type: Spontaneous
  Country: US (occurrence: US)
  Receive Date: 20221207
  Receipt Date: 20221207
  Transmission Date: 20230112
  Serious: No
  Sender: FDA-Public Use
  Company Number: US-ABBVIE-4162570

PATIENT
  Age: 73 Year
  Sex: Female
  Weight: 70.307 kg

DRUGS (5)
  1. HUMIRA [Suspect]
     Active Substance: ADALIMUMAB
     Indication: Crohn^s disease
     Route: 058
  2. HUMIRA [Suspect]
     Active Substance: ADALIMUMAB
     Indication: Psoriasis
     Route: 058
  3. XELJANZ [Suspect]
     Active Substance: TOFACITINIB CITRATE
     Indication: Crohn^s disease
     Dosage: FORM STRENGTH 10MG
     Route: 048
  4. MODERNA COVID-19 VACCINE [Suspect]
     Active Substance: ELASOMERAN
     Indication: COVID-19 immunisation
     Dosage: 1 IN ONCE
     Route: 030
  5. STELARA [Suspect]
     Active Substance: USTEKINUMAB
     Indication: Psoriasis
     Route: 065

REACTIONS (8)
  - Adverse food reaction [Unknown]
  - Crohn^s disease [Unknown]
  - Upper limb fracture [Unknown]
  - Fall [Unknown]
  - Psoriasis [Unknown]
  - Arthritis enteropathic [Unknown]
  - Deafness [Unknown]
  - Pain [Unknown]

NARRATIVE: CASE EVENT DATE: 20221009
